FAERS Safety Report 13722385 (Version 2)
Quarter: 2017Q3

REPORT INFORMATION
  Report Type: Spontaneous
  Country: US (occurrence: US)
  Receive Date: 20170706
  Receipt Date: 20170801
  Transmission Date: 20171127
  Serious: No
  Sender: FDA-Public Use
  Company Number: US-BRISTOL-MYERS SQUIBB COMPANY-BMS-2017-059790

PATIENT
  Sex: Male

DRUGS (2)
  1. ABILIFY [Suspect]
     Active Substance: ARIPIPRAZOLE
     Indication: BIPOLAR DISORDER
     Dosage: UNK
     Route: 065
     Dates: start: 200711, end: 201412
  2. ABILIFY [Suspect]
     Active Substance: ARIPIPRAZOLE
     Indication: ANXIETY
     Route: 065

REACTIONS (7)
  - Gambling [Unknown]
  - Sexually transmitted disease [Unknown]
  - Emotional distress [Unknown]
  - Psychosexual disorder [Unknown]
  - Obsessive-compulsive disorder [Recovered/Resolved]
  - Mental disorder [Unknown]
  - Injury [Unknown]
